FAERS Safety Report 18844888 (Version 5)
Quarter: 2022Q1

REPORT INFORMATION
  Report Type: Spontaneous
  Country: AU (occurrence: AU)
  Receive Date: 20210204
  Receipt Date: 20220202
  Transmission Date: 20220423
  Serious: Yes (Hospitalization, Disabling, Other)
  Sender: FDA-Public Use
  Company Number: AU-SA-SAC20210130000099

PATIENT
  Age: 39 Year
  Sex: Male
  Weight: 74 kg

DRUGS (6)
  1. DUPIXENT [Suspect]
     Active Substance: DUPILUMAB
     Indication: Dermatitis atopic
     Dosage: 300 MG, QOW
     Route: 058
     Dates: start: 201901, end: 202010
  2. AZATHIOPRINE [Concomitant]
     Active Substance: AZATHIOPRINE
     Indication: Dermatitis atopic
  3. CORTICOSTEROID NOS [Concomitant]
     Active Substance: CORTICOSTEROID NOS
     Indication: Chronic inflammatory demyelinating polyradiculoneuropathy
     Dosage: UNK
     Route: 061
  4. CORTICOSTEROID NOS [Concomitant]
     Active Substance: CORTICOSTEROID NOS
     Indication: Gait disturbance
     Dosage: UNK
  5. CORTICOSTEROID NOS [Concomitant]
     Active Substance: CORTICOSTEROID NOS
     Indication: Guillain-Barre syndrome
  6. CORTICOSTEROID NOS [Concomitant]
     Active Substance: CORTICOSTEROID NOS
     Indication: Dermatitis atopic

REACTIONS (8)
  - Chronic inflammatory demyelinating polyradiculoneuropathy [Recovering/Resolving]
  - Hyporeflexia [Recovering/Resolving]
  - Sensory disturbance [Recovering/Resolving]
  - Muscular weakness [Not Recovered/Not Resolved]
  - Guillain-Barre syndrome [Not Recovered/Not Resolved]
  - Neurological decompensation [Unknown]
  - Gait disturbance [Not Recovered/Not Resolved]
  - Rebound atopic dermatitis [Recovering/Resolving]

NARRATIVE: CASE EVENT DATE: 20201001
